FAERS Safety Report 4698243-5 (Version None)
Quarter: 2005Q2

REPORT INFORMATION
  Report Type: 
  Country: None (occurrence: None)
  Receive Date: 20050623
  Receipt Date: 20050517
  Transmission Date: 20051028
  Serious: Yes (Hospitalization)
  Sender: FDA-Public Use
  Company Number: IL-JNJFOC-20050505275

PATIENT
  Age: 37 Year
  Sex: Female

DRUGS (13)
  1. OXYBUTYNIN [Suspect]
     Route: 049
  2. OXYBUTYNIN [Suspect]
     Route: 049
  3. OXYBUTYNIN [Suspect]
     Indication: HYPERTONIC BLADDER
     Route: 049
  4. CARBAMAZEPINE [Interacting]
  5. CARBAMAZEPINE [Interacting]
  6. CARBAMAZEPINE [Interacting]
     Indication: NEUROPATHIC PAIN
  7. DANTROLENE [Suspect]
  8. DANTROLENE [Suspect]
  9. DANTROLENE [Suspect]
  10. DANTROLENE [Suspect]
     Indication: MUSCLE SPASTICITY
  11. BACLOFEN [Concomitant]
     Indication: MUSCLE SPASTICITY
  12. ATENOLOL [Concomitant]
     Indication: HYPERTENSION
  13. FLUVOXAMINE [Concomitant]
     Indication: DEPRESSION

REACTIONS (9)
  - BALANCE DISORDER [None]
  - CONFUSIONAL STATE [None]
  - DIZZINESS [None]
  - DRUG INTERACTION [None]
  - DRUG TOXICITY [None]
  - DYSARTHRIA [None]
  - NYSTAGMUS [None]
  - SOMNOLENCE [None]
  - VOMITING [None]
